FAERS Safety Report 7128076-1 (Version None)
Quarter: 2010Q4

REPORT INFORMATION
  Report Type: 
  Country: None (occurrence: None)
  Receive Date: 20101130
  Receipt Date: 20101122
  Transmission Date: 20110411
  Serious: Yes (Other)
  Sender: FDA-Public Use
  Company Number: FR-B.I. PHARMACEUTICALS,INC./RIDGEFIELD-2009-FF-00707FF

PATIENT
  Age: 70 Year
  Sex: Female

DRUGS (5)
  1. PRADAXA [Suspect]
     Indication: KNEE ARTHROPLASTY
     Dosage: 220 MG
     Route: 048
     Dates: start: 20091007, end: 20091013
  2. AMAREL [Concomitant]
  3. GLUCOPHAGE [Concomitant]
  4. BISOPROLOL FUMARATE [Concomitant]
  5. LANTUS [Concomitant]

REACTIONS (1)
  - PHLEBITIS [None]
